FAERS Safety Report 8329585-X (Version None)
Quarter: 2012Q2

REPORT INFORMATION
  Report Type: 
  Country: None (occurrence: None)
  Receive Date: 20120502
  Receipt Date: 20120426
  Transmission Date: 20120825
  Serious: Yes (Other)
  Sender: FDA-Public Use
  Company Number: PHEH2012US007431

PATIENT
  Sex: Female
  Weight: 65.306 kg

DRUGS (6)
  1. VITAMIN D [Concomitant]
     Route: 048
  2. CRANBERRY [Concomitant]
     Route: 048
  3. VITAMIN C [Concomitant]
     Route: 048
  4. GILENYA [Suspect]
     Indication: MULTIPLE SCLEROSIS
     Dosage: 0.5 MG, QD
     Route: 048
     Dates: start: 20120101, end: 20120409
  5. CALCIUM [Concomitant]
     Route: 048
  6. FISH OIL [Concomitant]
     Route: 048

REACTIONS (3)
  - VISUAL IMPAIRMENT [None]
  - OCULAR HYPERAEMIA [None]
  - WHITE BLOOD CELL COUNT DECREASED [None]
